FAERS Safety Report 9379238 (Version 1)
Quarter: 2013Q2

REPORT INFORMATION
  Report Type: Spontaneous
  Country: US (occurrence: None)
  Receive Date: 20130626
  Receipt Date: 20130626
  Transmission Date: 20140414
  Serious: Yes (Other)
  Sender: FDA-Public Use
  Company Number: JPI-P-033058

PATIENT
  Age: 26 Year
  Sex: Male

DRUGS (1)
  1. XYREM(500 MILLIGRAM/MILLILITERS, SOLUTION)(SODIUM OXYBATE) [Suspect]
     Indication: NARCOLEPSY
     Dosage: 4.5 GM (2.25 GM,2 IN 1 D)
     Route: 048
     Dates: start: 20100510

REACTIONS (1)
  - Road traffic accident [None]
